FAERS Safety Report 7353999-8 (Version None)
Quarter: 2011Q1

REPORT INFORMATION
  Report Type: 
  Country: None (occurrence: None)
  Receive Date: 20110315
  Receipt Date: 20110303
  Transmission Date: 20110831
  Serious: Yes (Hospitalization, Other)
  Sender: FDA-Public Use
  Company Number: PHHO2011AU01604

PATIENT
  Sex: Male

DRUGS (11)
  1. POSACONAZOLE [Concomitant]
     Indication: PROPHYLAXIS
  2. AZACITIDINE [Suspect]
     Indication: ACUTE MYELOID LEUKAEMIA
     Dosage: 138 MG, DAILY
     Dates: start: 20110110
  3. ENDONE [Concomitant]
     Indication: ANALGESIC THERAPY
  4. ASCORBIC ACID [Concomitant]
  5. CIPROFLOXACIN [Concomitant]
     Indication: PROPHYLAXIS
     Dosage: UNK
  6. EVEROLIMUS [Suspect]
     Indication: ACUTE MYELOID LEUKAEMIA
     Dosage: 2.5 MG, DAILY
     Dates: start: 20110114
  7. PARACETAMOL [Suspect]
     Indication: ANALGESIC THERAPY
     Dosage: 1 G, QID. PRN
     Route: 048
  8. MULTI-VITAMINS [Concomitant]
  9. OLIVE LEAVES EXTRACT [Concomitant]
     Indication: SUPPLEMENTATION THERAPY
  10. VALTREX [Concomitant]
     Indication: PROPHYLAXIS
  11. NYSTATIN [Concomitant]
     Indication: PROPHYLAXIS

REACTIONS (5)
  - DERMATITIS [None]
  - RASH ERYTHEMATOUS [None]
  - FEBRILE NEUTROPENIA [None]
  - MUSCULOSKELETAL PAIN [None]
  - LUNG CONSOLIDATION [None]
